FAERS Safety Report 22603376 (Version 6)
Quarter: 2025Q3

REPORT INFORMATION
  Report Type: Report from Study
  Country: CO (occurrence: CO)
  Receive Date: 20230615
  Receipt Date: 20250825
  Transmission Date: 20251020
  Serious: Yes (Other)
  Sender: HELSINN HEALTHCARE
  Company Number: CO-HBP-2023CO028958

PATIENT
  Age: 39 Year
  Sex: Female
  Weight: 62 kg

DRUGS (6)
  1. MECHLORETHAMINE HYDROCHLORIDE [Suspect]
     Active Substance: MECHLORETHAMINE HYDROCHLORIDE
     Indication: Cutaneous T-cell lymphoma
     Dosage: UNK, ONE APPLICATION ON THE LESIONS EVERY 24 HOURS AT NIGHT
     Route: 061
     Dates: start: 20230531, end: 20230601
  2. MECHLORETHAMINE HYDROCHLORIDE [Suspect]
     Active Substance: MECHLORETHAMINE HYDROCHLORIDE
     Dosage: UNK, QOD
     Route: 061
     Dates: start: 20230601, end: 20230604
  3. MECHLORETHAMINE HYDROCHLORIDE [Suspect]
     Active Substance: MECHLORETHAMINE HYDROCHLORIDE
     Dosage: UNK, QOD
     Route: 061
     Dates: end: 2024
  4. MECHLORETHAMINE HYDROCHLORIDE [Suspect]
     Active Substance: MECHLORETHAMINE HYDROCHLORIDE
     Dosage: UNK, QOD
     Route: 061
     Dates: start: 2024
  5. TACROLIMUS [Suspect]
     Active Substance: TACROLIMUS
     Indication: Cutaneous T-cell lymphoma
     Dosage: UNK, AT NIGHT
     Route: 061
  6. ISOTRETINOIN [Concomitant]
     Active Substance: ISOTRETINOIN
     Indication: Acne
     Dosage: 1 DOSAGE FORM, QOD

REACTIONS (6)
  - Application site pain [Recovered/Resolved]
  - Cutaneous T-cell lymphoma recurrent [Unknown]
  - Application site erythema [Recovering/Resolving]
  - Therapy partial responder [Unknown]
  - Application site irritation [Not Recovered/Not Resolved]
  - Application site pruritus [Recovering/Resolving]

NARRATIVE: CASE EVENT DATE: 20230601
